FAERS Safety Report 6456156-2 (Version None)
Quarter: 2009Q4

REPORT INFORMATION
  Report Type: 
  Country: None (occurrence: None)
  Receive Date: 20091124
  Receipt Date: 20091124
  Transmission Date: 20100525
  Serious: Yes (Other)
  Sender: FDA-Public Use
  Company Number: None

PATIENT
  Sex: Female
  Weight: 59.8748 kg

DRUGS (1)
  1. PEPCID AC [Suspect]
     Indication: DYSPEPSIA
     Dosage: 1 TABLET DENTAL
     Route: 004
     Dates: start: 20091116, end: 20091119

REACTIONS (2)
  - HYPERSENSITIVITY [None]
  - RASH [None]
